FAERS Safety Report 10983115 (Version 2)
Quarter: 2015Q2

REPORT INFORMATION
  Report Type: Spontaneous
  Country: US (occurrence: US)
  Receive Date: 20150403
  Receipt Date: 20150512
  Transmission Date: 20150821
  Serious: No
  Sender: FDA-Public Use
  Company Number: US-PFIZER INC-2015112274

PATIENT
  Age: 75 Year
  Sex: Female
  Weight: 58 kg

DRUGS (1)
  1. TOVIAZ [Suspect]
     Active Substance: FESOTERODINE FUMARATE
     Indication: URINARY INCONTINENCE
     Dosage: 4 MG, 1X/DAY
     Route: 048
     Dates: start: 201503

REACTIONS (2)
  - Drug effect incomplete [Not Recovered/Not Resolved]
  - Vision blurred [Recovered/Resolved]

NARRATIVE: CASE EVENT DATE: 201503
